FAERS Safety Report 25573287 (Version 1)
Quarter: 2025Q3

REPORT INFORMATION
  Report Type: Spontaneous
  Country: EU (occurrence: EU)
  Receive Date: 20250717
  Receipt Date: 20250717
  Transmission Date: 20251021
  Serious: Yes (Other)
  Sender: ANI
  Company Number: EU-ANIPHARMA-2025-FR-000099

PATIENT
  Age: 57 Year
  Sex: Female

DRUGS (1)
  1. CANDESARTAN CILEXETIL AND HYDROCHLOROTHIAZIDE [Suspect]
     Active Substance: CANDESARTAN CILEXETIL\HYDROCHLOROTHIAZIDE
     Indication: Hypertension
     Dates: start: 20170301, end: 20241019

REACTIONS (1)
  - Basal cell carcinoma [Unknown]
